FAERS Safety Report 10267029 (Version 2)
Quarter: 2014Q2

REPORT INFORMATION
  Report Type: Report from Study
  Country: PE (occurrence: PE)
  Receive Date: 20140630
  Receipt Date: 20140630
  Transmission Date: 20141212
  Serious: Yes (Other)
  Sender: FDA-Public Use
  Company Number: PE-ROCHE-1382953

PATIENT
  Age: 51 Year
  Sex: Female

DRUGS (3)
  1. HERCEPTIN [Suspect]
     Indication: BREAST CANCER
     Route: 042
     Dates: start: 20120503
  2. HERCEPTIN [Suspect]
     Route: 042
     Dates: start: 20120315, end: 20140404
  3. HERCEPTIN [Suspect]
     Dosage: DATE OF LAST APPLICATION OF HERCEPTIN: 13/JUN/2014
     Route: 065
     Dates: start: 20140502

REACTIONS (4)
  - Lung carcinoma cell type unspecified recurrent [Not Recovered/Not Resolved]
  - Metastasis [Not Recovered/Not Resolved]
  - Dyspnoea [Unknown]
  - Pleural effusion [Unknown]
